FAERS Safety Report 9883630 (Version 3)
Quarter: 2014Q1

REPORT INFORMATION
  Report Type: Report from Study
  Country: SK (occurrence: SK)
  Receive Date: 20140210
  Receipt Date: 20140225
  Transmission Date: 20141002
  Serious: Yes (Life-Threatening, Hospitalization)
  Sender: FDA-Public Use
  Company Number: SK-ROCHE-1344768

PATIENT
  Age: 53 Year
  Sex: Female
  Weight: 73 kg

DRUGS (14)
  1. TRASTUZUMAB EMTANSINE [Suspect]
     Indication: BREAST CANCER METASTATIC
     Dosage: DOSE AS PER PROTOCOL: 3.6MG/KG
     Route: 042
     Dates: start: 20140128
  2. CONTROLOC [Concomitant]
     Route: 065
     Dates: start: 20140204, end: 20140205
  3. DEGAN [Concomitant]
     Route: 065
     Dates: start: 20140203, end: 20140205
  4. GLYCERIN SUPPOSITORIES [Concomitant]
     Route: 065
     Dates: start: 20140203, end: 20140203
  5. DUPHALAC [Concomitant]
     Route: 065
     Dates: start: 20140203, end: 20140203
  6. NOVALGIN (SLOVAKIA) [Concomitant]
     Route: 065
     Dates: start: 20140204, end: 20140204
  7. FORTECORTIN [Concomitant]
     Route: 065
     Dates: start: 20140205
  8. DEXAMETHASON [Concomitant]
     Route: 065
     Dates: start: 20140203, end: 20140204
  9. DEXAMETHASON [Concomitant]
     Route: 065
     Dates: start: 20140205, end: 20140212
  10. FRAXIPARIN [Concomitant]
     Route: 065
     Dates: start: 20140205
  11. FLAVOBION [Concomitant]
     Route: 065
     Dates: start: 20140205
  12. HELICID [Concomitant]
     Route: 065
     Dates: start: 20140205
  13. ESSENTIALE FORTE N [Concomitant]
     Route: 065
     Dates: start: 20140205
  14. FUROSEMIDE [Concomitant]
     Route: 065
     Dates: start: 20140205

REACTIONS (1)
  - Cerebral haemorrhage [Recovered/Resolved]
